FAERS Safety Report 24082186 (Version 1)
Quarter: 2024Q3

REPORT INFORMATION
  Report Type: Spontaneous
  Country: ES (occurrence: None)
  Receive Date: 20240712
  Receipt Date: 20240712
  Transmission Date: 20241016
  Serious: Yes (Death)
  Sender: ASTRAZENECA
  Company Number: 2024A156359

PATIENT
  Age: 58 Year
  Sex: Male
  Weight: 57.2 kg

DRUGS (8)
  1. DURVALUMAB [Suspect]
     Active Substance: DURVALUMAB
     Indication: Hepatocellular carcinoma
     Dosage: 1500.0MG ONCE/SINGLE ADMINISTRATION
     Route: 042
     Dates: start: 20240613, end: 20240613
  2. TREMELIMUMAB [Suspect]
     Active Substance: TREMELIMUMAB
     Indication: Hepatocellular carcinoma
     Dosage: 300.0MG ONCE/SINGLE ADMINISTRATION
     Route: 042
     Dates: start: 20240613, end: 20240613
  3. NOLOTIL [Concomitant]
     Route: 048
     Dates: start: 20231124, end: 20240617
  4. SULFAMETHOXAZOLE\TRIMETHOPRIM [Concomitant]
     Active Substance: SULFAMETHOXAZOLE\TRIMETHOPRIM
     Route: 048
     Dates: start: 20240503, end: 20240617
  5. OMEPRAZOLE [Concomitant]
     Active Substance: OMEPRAZOLE
     Route: 048
     Dates: start: 20240322, end: 20240617
  6. CARVEDILOL [Concomitant]
     Active Substance: CARVEDILOL
     Route: 048
     Dates: start: 20240503, end: 20240617
  7. ALDACTONE [Concomitant]
     Active Substance: SPIRONOLACTONE
     Route: 048
     Dates: start: 20240503, end: 20240617
  8. PARACETAMOL CINFA [Concomitant]
     Route: 048
     Dates: start: 20231124, end: 20240617

REACTIONS (1)
  - Acute on chronic liver failure [Fatal]

NARRATIVE: CASE EVENT DATE: 20240616
